FAERS Safety Report 21877332 (Version 1)
Quarter: 2023Q1

REPORT INFORMATION
  Report Type: Spontaneous
  Country: US (occurrence: None)
  Receive Date: 20230116
  Receipt Date: 20230116
  Transmission Date: 20230418
  Serious: No
  Sender: FDA-Public Use
  Company Number: None

PATIENT
  Sex: Female

DRUGS (12)
  1. AMBRISENTAN [Suspect]
     Active Substance: AMBRISENTAN
     Indication: Pulmonary arterial hypertension
     Dosage: FREQUENCY : DAILY;?
     Route: 048
     Dates: start: 20221122
  2. FOLIC ACID TAB [Concomitant]
  3. FUROSEMIDE TAB [Concomitant]
  4. GABAPENTIN [Concomitant]
     Active Substance: GABAPENTIN
  5. MAGNESIUM TAB [Concomitant]
  6. MIDODRINE TAB [Concomitant]
  7. POTASSIUM TAB [Concomitant]
  8. SILDENAFIL [Concomitant]
     Active Substance: SILDENAFIL
  9. SPIRONOLACT TAB [Concomitant]
  10. VITAMIN B1 TAB [Concomitant]
  11. VITAMIN B12 TAB [Concomitant]
  12. VITAMIN D3 CAP [Concomitant]

REACTIONS (1)
  - Therapy interrupted [None]
